FAERS Safety Report 13831254 (Version 1)
Quarter: 2017Q3

REPORT INFORMATION
  Report Type: Spontaneous
  Country: TR (occurrence: TR)
  Receive Date: 20170803
  Receipt Date: 20170803
  Transmission Date: 20171127
  Serious: Yes (Other)
  Sender: FDA-Public Use
  Company Number: TR-TEVA-792476ROM

PATIENT
  Age: 12 Year
  Sex: Male

DRUGS (4)
  1. VINCRISTINE [Suspect]
     Active Substance: VINCRISTINE
     Indication: ALVEOLAR RHABDOMYOSARCOMA
     Dosage: EVERY 3 WEEKS
     Route: 065
  2. DACTINOMYCIN [Suspect]
     Active Substance: DACTINOMYCIN
     Indication: ALVEOLAR RHABDOMYOSARCOMA
     Dosage: EVERY 3 WEEKS
     Route: 065
  3. CYCLOPHOSPHAMIDE. [Suspect]
     Active Substance: CYCLOPHOSPHAMIDE
     Indication: ALVEOLAR RHABDOMYOSARCOMA
     Dosage: EVERY 3 WEEKS
     Route: 065
  4. MESNA. [Suspect]
     Active Substance: MESNA
     Indication: ALVEOLAR RHABDOMYOSARCOMA
     Dosage: EVERY 3 WEEKS
     Route: 065

REACTIONS (2)
  - Febrile neutropenia [Unknown]
  - Cytomegalovirus chorioretinitis [Recovered/Resolved]
